FAERS Safety Report 8763398 (Version 1)
Quarter: 2012Q4

REPORT INFORMATION
  Report Type: 
  Country: US (occurrence: US)
  Receive Date: 20120831
  Receipt Date: 20120831
  Transmission Date: 20130627
  Serious: Yes (Death)
  Sender: FDA-Public Use
  Company Number: US-ELI_LILLY_AND_COMPANY-US201208008666

PATIENT
  Sex: Male

DRUGS (3)
  1. EFFIENT [Suspect]
     Indication: ACUTE MYOCARDIAL INFARCTION
     Dosage: 60 mg, loading dose only
     Dates: start: 20120827, end: 20120827
  2. INTEGRELIN [Concomitant]
     Indication: ACUTE MYOCARDIAL INFARCTION
  3. ANGIOMAX [Concomitant]
     Indication: ACUTE MYOCARDIAL INFARCTION
     Dosage: UNK

REACTIONS (1)
  - Death [Fatal]
